FAERS Safety Report 12727427 (Version 4)
Quarter: 2016Q4

REPORT INFORMATION
  Report Type: Spontaneous
  Country: US (occurrence: US)
  Receive Date: 20160909
  Receipt Date: 20161125
  Transmission Date: 20170207
  Serious: No
  Sender: FDA-Public Use
  Company Number: PHEH2016US022743

PATIENT
  Age: 57 Year
  Sex: Female

DRUGS (2)
  1. AFINITOR [Suspect]
     Active Substance: EVEROLIMUS
     Indication: MALIGNANT NEOPLASM OF RENAL PELVIS
     Dosage: 5 MG, QD
     Route: 048
     Dates: start: 20160824
  2. LENVATINIB [Suspect]
     Active Substance: LENVATINIB
     Indication: MALIGNANT NEOPLASM OF RENAL PELVIS
     Dosage: 18 MG, QD
     Route: 048
     Dates: start: 20160824

REACTIONS (3)
  - Abdominal pain [Recovered/Resolved]
  - Weight decreased [Not Recovered/Not Resolved]
  - Constipation [Recovered/Resolved]

NARRATIVE: CASE EVENT DATE: 201608
